FAERS Safety Report 17993878 (Version 1)
Quarter: 2020Q3

REPORT INFORMATION
  Report Type: Spontaneous
  Country: US (occurrence: US)
  Receive Date: 20200707
  Receipt Date: 20200707
  Transmission Date: 20201103
  Serious: Yes (Hospitalization)
  Sender: FDA-Public Use
  Company Number: None

PATIENT
  Age: 9 Year
  Sex: Male

DRUGS (5)
  1. LEVOCARNITINE. [Concomitant]
     Active Substance: LEVOCARNITINE
  2. GABAPENTIN. [Concomitant]
     Active Substance: GABAPENTIN
  3. EPIDIOLEX [Suspect]
     Active Substance: CANNABIDIOL
     Route: 048
  4. ONFI [Concomitant]
     Active Substance: CLOBAZAM
  5. ZONISAMIDE. [Concomitant]
     Active Substance: ZONISAMIDE

REACTIONS (1)
  - Septic shock [None]

NARRATIVE: CASE EVENT DATE: 20200620
